FAERS Safety Report 19913231 (Version 2)
Quarter: 2021Q4

REPORT INFORMATION
  Report Type: Spontaneous
  Country: BR (occurrence: BR)
  Receive Date: 20211004
  Receipt Date: 20211004
  Transmission Date: 20220303
  Serious: Yes (Death)
  Sender: FDA-Public Use
  Company Number: BR-CELGENE-BRA-20210908366

PATIENT
  Sex: Male
  Weight: 50 kg

DRUGS (2)
  1. VIDAZA [Suspect]
     Active Substance: AZACITIDINE
     Indication: Leukaemia
     Route: 058
     Dates: start: 202004, end: 20200606
  2. VIDAZA [Suspect]
     Active Substance: AZACITIDINE
     Indication: Off label use

REACTIONS (1)
  - Leukaemia [Fatal]
